FAERS Safety Report 5413330-1 (Version None)
Quarter: 2007Q3

REPORT INFORMATION
  Report Type: 
  Country: None (occurrence: None)
  Receive Date: 20070814
  Receipt Date: 20070803
  Transmission Date: 20080115
  Serious: Yes (Hospitalization)
  Sender: FDA-Public Use
  Company Number: FR-JNJFOC-20041101851

PATIENT
  Sex: Female
  Weight: 53 kg

DRUGS (12)
  1. PLACEBO [Suspect]
     Route: 042
  2. PLACEBO [Concomitant]
     Indication: ACUTE MYOCARDIAL INFARCTION
     Route: 042
  3. PLACEBO [Concomitant]
     Route: 042
  4. PLACEBO [Concomitant]
     Route: 042
  5. ABCIXIMAB [Suspect]
     Route: 042
  6. ABCIXIMAB [Suspect]
     Indication: ACUTE MYOCARDIAL INFARCTION
     Route: 042
  7. ASPIRIN [Concomitant]
     Indication: MYOCARDIAL INFARCTION
     Route: 042
  8. PLAVIX [Suspect]
     Indication: MYOCARDIAL INFARCTION
     Route: 048
  9. OMEPRAZOLE [Concomitant]
     Indication: PROPHYLAXIS
     Route: 048
  10. TAHOR [Concomitant]
     Indication: HYPERCHOLESTEROLAEMIA
     Route: 048
  11. ACEBUTOLOL [Concomitant]
     Indication: MYOCARDIAL INFARCTION
     Route: 048
  12. METHOTREXATE [Concomitant]
     Dosage: MONDAYS

REACTIONS (1)
  - VASCULAR PSEUDOANEURYSM [None]
